FAERS Safety Report 9819948 (Version 1)
Quarter: 2013Q4

REPORT INFORMATION
  Report Type: Spontaneous
  Country: US (occurrence: None)
  Receive Date: 20131223
  Receipt Date: 20131223
  Transmission Date: 20140711
  Serious: No
  Sender: FDA-Public Use
  Company Number: 218389

PATIENT
  Sex: Male

DRUGS (1)
  1. PICATO [Suspect]
     Indication: THERAPEUTIC SKIN CARE TOPICAL
     Route: 061
     Dates: start: 20120711

REACTIONS (6)
  - Blister [None]
  - Skin discolouration [None]
  - Skin burning sensation [None]
  - Erythema [None]
  - Drug administration error [None]
  - Off label use [None]
